FAERS Safety Report 6184406-9 (Version None)
Quarter: 2009Q2

REPORT INFORMATION
  Report Type: 
  Country: None (occurrence: None)
  Receive Date: 20090508
  Receipt Date: 20090428
  Transmission Date: 20091009
  Serious: Yes (Other)
  Sender: FDA-Public Use
  Company Number: B0572024A

PATIENT
  Age: 60 Year
  Sex: Female

DRUGS (5)
  1. SERETIDE [Suspect]
     Indication: ASTHMA
     Route: 055
     Dates: start: 20081209, end: 20090422
  2. SEREVENT [Concomitant]
  3. VENTOLIN [Concomitant]
  4. ATACAND HCT [Concomitant]
  5. ATACAND HCT [Concomitant]
     Indication: BLOOD PRESSURE
     Dates: start: 20080426

REACTIONS (4)
  - ASTHMA [None]
  - DYSPHONIA [None]
  - OROPHARYNGEAL PAIN [None]
  - UPPER RESPIRATORY TRACT CONGESTION [None]
